FAERS Safety Report 10297170 (Version 1)
Quarter: 2014Q3

REPORT INFORMATION
  Report Type: Report from Study
  Country: US (occurrence: US)
  Receive Date: 20140711
  Receipt Date: 20140711
  Transmission Date: 20150326
  Serious: Yes (Hospitalization, Other)
  Sender: FDA-Public Use
  Company Number: US-ROCHE-1429472

PATIENT
  Sex: Male

DRUGS (10)
  1. FENOFIBRATE. [Concomitant]
     Active Substance: FENOFIBRATE
     Route: 065
  2. MORPHINE [Concomitant]
     Active Substance: MORPHINE
  3. VERAPAMIL [Concomitant]
     Active Substance: VERAPAMIL HYDROCHLORIDE
     Route: 065
  4. LORATADINE. [Concomitant]
     Active Substance: LORATADINE
  5. LISINOPRIL. [Concomitant]
     Active Substance: LISINOPRIL
     Dosage: DOSE 10.12.5
     Route: 065
  6. TESTOSTERONE. [Concomitant]
     Active Substance: TESTOSTERONE
     Route: 030
  7. CLONAZEPAM. [Suspect]
     Active Substance: CLONAZEPAM
     Indication: PRODUCT USED FOR UNKNOWN INDICATION
     Route: 065
  8. PENTOXIFYLLINE. [Concomitant]
     Active Substance: PENTOXIFYLLINE
     Route: 065
  9. PROZAC [Concomitant]
     Active Substance: FLUOXETINE HYDROCHLORIDE
     Route: 065
  10. PRAVASTATIN [Concomitant]
     Active Substance: PRAVASTATIN\PRAVASTATIN SODIUM
     Route: 065

REACTIONS (7)
  - Craniocerebral injury [Unknown]
  - Anxiety [Unknown]
  - Amnesia [Recovering/Resolving]
  - Insulin-like growth factor decreased [Unknown]
  - Raynaud^s phenomenon [Unknown]
  - Post-traumatic stress disorder [Unknown]
  - Blood testosterone decreased [Unknown]
